FAERS Safety Report 9910765 (Version 3)
Quarter: 2015Q3

REPORT INFORMATION
  Report Type: Spontaneous
  Country: US (occurrence: US)
  Receive Date: 20140219
  Receipt Date: 20150812
  Transmission Date: 20151125
  Serious: No
  Sender: FDA-Public Use
  Company Number: US-GILEAD-2012-0054559

PATIENT
  Age: 77 Year
  Sex: Female

DRUGS (1)
  1. LETAIRIS [Suspect]
     Active Substance: AMBRISENTAN
     Indication: PULMONARY HYPERTENSION
     Dosage: 10 MG, UNK
     Route: 048
     Dates: start: 20120329, end: 20120619

REACTIONS (12)
  - Fatigue [Unknown]
  - Abdominal pain [Unknown]
  - Dizziness [Unknown]
  - Pain [Unknown]
  - Nasal congestion [Unknown]
  - Swelling [Unknown]
  - Syncope [Unknown]
  - Unevaluable event [Unknown]
  - Nasal septal operation [Unknown]
  - Headache [Unknown]
  - Face oedema [Unknown]
  - Oedema peripheral [Unknown]
